FAERS Safety Report 8383202-1 (Version None)
Quarter: 2012Q2

REPORT INFORMATION
  Report Type: 
  Country: None (occurrence: None)
  Receive Date: 20120524
  Receipt Date: 20120515
  Transmission Date: 20120825
  Serious: Yes (Other)
  Sender: FDA-Public Use
  Company Number: CH-BRISTOL-MYERS SQUIBB COMPANY-16623332

PATIENT
  Sex: Male
  Weight: 3 kg

DRUGS (1)
  1. IRBESARTAN + HYDROCHLOROTHIAZIDE [Suspect]
     Dosage: 1DF=300MG+12.5MG
     Route: 064

REACTIONS (3)
  - JAUNDICE NEONATAL [None]
  - MATERNAL DRUGS AFFECTING FOETUS [None]
  - PREMATURE BABY [None]
